FAERS Safety Report 9098286 (Version 4)
Quarter: 2013Q1

REPORT INFORMATION
  Report Type: Report from Study
  Country: JP (occurrence: JP)
  Receive Date: 20130213
  Receipt Date: 20130311
  Transmission Date: 20140127
  Serious: Yes (Hospitalization)
  Sender: FDA-Public Use
  Company Number: JP-PFIZER INC-2013055621

PATIENT
  Age: 75 Year
  Sex: Male
  Weight: 63 kg

DRUGS (6)
  1. IRINOTECAN HCL [Suspect]
     Indication: RECTAL CANCER
     Dosage: DECREASED DOSE BY ONE DOSE LEVEL
     Route: 042
     Dates: start: 20120501
  2. FLUOROURACIL [Suspect]
     Indication: RECTAL CANCER
     Dosage: DECREASED DOSE BY ONE DOSE LEVEL
     Route: 042
     Dates: start: 20120501
  3. FOLINIC ACID [Suspect]
     Indication: RECTAL CANCER
     Dosage: UNK
     Route: 042
     Dates: start: 20120501
  4. BLINDED THERAPY [Suspect]
     Indication: RECTAL CANCER
     Dosage: UNK
     Route: 042
     Dates: start: 20120501
  5. OXYCONTIN [Suspect]
     Dosage: UNK
     Route: 048
     Dates: start: 20120221, end: 20130125
  6. MAGMITT [Concomitant]
     Dosage: UNK
     Dates: start: 20120816

REACTIONS (1)
  - Intestinal obstruction [Recovered/Resolved]
